FAERS Safety Report 8066057-4 (Version None)
Quarter: 2012Q1

REPORT INFORMATION
  Report Type: 
  Country: None (occurrence: None)
  Receive Date: 20120124
  Receipt Date: 20120117
  Transmission Date: 20120608
  Serious: Yes (Hospitalization)
  Sender: FDA-Public Use
  Company Number: US-JNJFOC-20110102046

PATIENT
  Sex: Female
  Weight: 11.7 kg

DRUGS (3)
  1. CHILDREN'S MOTRIN [Suspect]
     Indication: PYREXIA
     Route: 048
     Dates: start: 20050520, end: 20050521
  2. ACETAMINOPHEN [Concomitant]
     Indication: PYREXIA
  3. CHILDREN'S MOTRIN [Suspect]
     Indication: DISCOMFORT
     Route: 048
     Dates: start: 20050520, end: 20050521

REACTIONS (1)
  - STEVENS-JOHNSON SYNDROME [None]
